FAERS Safety Report 25460867 (Version 1)
Quarter: 2025Q2

REPORT INFORMATION
  Report Type: Spontaneous
  Country: US (occurrence: None)
  Receive Date: 20250619
  Receipt Date: 20250619
  Transmission Date: 20250717
  Serious: Yes (Hospitalization)
  Sender: FDA-CTU
  Company Number: None

PATIENT
  Age: 66 Year
  Sex: Male

DRUGS (12)
  1. MYCOPHENOLIC ACID [Suspect]
     Active Substance: MYCOPHENOLIC ACID
     Indication: Lung transplant
     Dosage: FREQUENCY : TWICE A DAY;?OTHER ROUTE : VIA FEEDING TUBE;?
     Route: 050
     Dates: start: 20250516
  2. PROGRAF [Suspect]
     Active Substance: TACROLIMUS
     Indication: Lung transplant
     Dosage: FREQUENCY : TWICE A DAY;?
     Route: 048
     Dates: start: 20250521
  3. LOSARTAN [Concomitant]
     Active Substance: LOSARTAN
  4. FUROSEMIDE [Concomitant]
     Active Substance: FUROSEMIDE
  5. TRAMADOL [Concomitant]
     Active Substance: TRAMADOL
  6. SODIUM CHLORIDE NEB SOLUTION [Concomitant]
  7. ACETAMINOPHEN [Concomitant]
     Active Substance: ACETAMINOPHEN
  8. VITAMIN D [Concomitant]
     Active Substance: VITAMIN D NOS
  9. ITRACONAZOLE [Concomitant]
     Active Substance: ITRACONAZOLE
  10. TACROLIMUS [Concomitant]
     Active Substance: TACROLIMUS
  11. OMEPRAZOLE [Concomitant]
     Active Substance: OMEPRAZOLE
  12. METOPROLOL [Concomitant]
     Active Substance: METOPROLOL

REACTIONS (2)
  - Malaise [None]
  - Hospitalisation [None]

NARRATIVE: CASE EVENT DATE: 20250619
